FAERS Safety Report 24407222 (Version 2)
Quarter: 2025Q3

REPORT INFORMATION
  Report Type: Spontaneous
  Country: US (occurrence: US)
  Receive Date: 20241007
  Receipt Date: 20250813
  Transmission Date: 20251021
  Serious: No
  Sender: SANOFI AVENTIS
  Company Number: US-SA-2024SA287143

PATIENT
  Sex: Female
  Weight: 126.98 kg

DRUGS (1)
  1. DUPIXENT [Suspect]
     Active Substance: DUPILUMAB
     Indication: Dermatitis atopic
     Dosage: 300 MG, QOW
     Route: 058

REACTIONS (6)
  - Rhinorrhoea [Unknown]
  - Pruritus [Unknown]
  - Eczema [Unknown]
  - Sleep disorder due to a general medical condition [Unknown]
  - Dry skin [Unknown]
  - Skin exfoliation [Unknown]
